FAERS Safety Report 19247944 (Version 1)
Quarter: 2021Q2

REPORT INFORMATION
  Report Type: Spontaneous
  Country: US (occurrence: US)
  Receive Date: 20210512
  Receipt Date: 20210512
  Transmission Date: 20210717
  Serious: No
  Sender: FDA-Public Use
  Company Number: US-TEVA-2021-US-1903342

PATIENT

DRUGS (2)
  1. ISONIAZID. [Suspect]
     Active Substance: ISONIAZID
     Dosage: PER DAY
     Route: 065
  2. VITAMIN B6 [Interacting]
     Active Substance: PYRIDOXINE HYDROCHLORIDE
     Dosage: PER DAY
     Route: 065

REACTIONS (3)
  - Drug interaction [Unknown]
  - Abdominal discomfort [Unknown]
  - Flatulence [Unknown]
